FAERS Safety Report 15336253 (Version 8)
Quarter: 2019Q4

REPORT INFORMATION
  Report Type: Report from Study
  Country: BE (occurrence: BE)
  Receive Date: 20180830
  Receipt Date: 20191220
  Transmission Date: 20200122
  Serious: Yes (Death, Hospitalization, Other)
  Sender: FDA-Public Use
  Company Number: BE-PFIZER INC-2018349259

PATIENT
  Age: 82 Year
  Sex: Male
  Weight: 88 kg

DRUGS (21)
  1. IRINOTECAN HCL [Suspect]
     Active Substance: IRINOTECAN HYDROCHLORIDE
     Dosage: 179 MG, EVERY 2 WEEKS
     Route: 042
     Dates: start: 20180716
  2. PANTOMED [PANTOPRAZOLE SODIUM SESQUIHYDRATE] [Concomitant]
     Active Substance: PANTOPRAZOLE SODIUM
  3. IRINOTECAN HCL [Suspect]
     Active Substance: IRINOTECAN HYDROCHLORIDE
     Dosage: 169 MG, EVERY 2 WEEKS
     Route: 042
     Dates: start: 20180625
  4. BEVACIZUMAB. [Suspect]
     Active Substance: BEVACIZUMAB
     Indication: COLORECTAL CANCER METASTATIC
     Dosage: 1 (UNITS NOT PROVIDED), EVERY 2 WEEKS
     Route: 042
     Dates: start: 20171023
  5. INNOHEP [Concomitant]
     Active Substance: TINZAPARIN SODIUM
     Indication: PULMONARY EMBOLISM
     Route: 065
  6. FLUOROURACIL. [Suspect]
     Active Substance: FLUOROURACIL
     Indication: COLORECTAL CANCER METASTATIC
     Dosage: 1 (UNITS NOT PROVIDED), CYCLIC, EVERY 2 WEEKS
     Route: 042
     Dates: start: 20171023
  7. MONTELUKAST [Concomitant]
     Active Substance: MONTELUKAST SODIUM
     Dosage: UNK
     Route: 065
     Dates: start: 20180703
  8. IRINOTECAN HCL [Suspect]
     Active Substance: IRINOTECAN HYDROCHLORIDE
     Indication: COLORECTAL CANCER METASTATIC
     Dosage: 1 (UNITS NOT PROVIDED), EVERY 2 WEEKS
     Route: 042
     Dates: start: 20171023
  9. LEUCOVORIN [FOLINIC ACID] [Suspect]
     Active Substance: LEUCOVORIN
     Dosage: 3384 MG, EVERY 2 WEEKS
     Route: 042
     Dates: start: 20180625
  10. ALGOSTASE [Concomitant]
     Dosage: UNK
     Route: 065
     Dates: start: 20180703
  11. TAMSULOSINE [TAMSULOSIN] [Concomitant]
     Active Substance: TAMSULOSIN
     Indication: BENIGN PROSTATIC HYPERPLASIA
     Dosage: UNK
     Route: 065
     Dates: start: 20180707
  12. LEUCOVORIN [FOLINIC ACID] [Suspect]
     Active Substance: LEUCOVORIN
     Indication: COLORECTAL CANCER METASTATIC
     Dosage: 1 (UNITS NOT PROVIDED), EVERY 2 WEEKS
     Route: 042
     Dates: start: 20171023
  13. ALDACTAZINE [Concomitant]
     Active Substance: ALTHIAZIDE\SPIRONOLACTONE
     Dosage: UNK
     Route: 065
     Dates: start: 20180703
  14. FLUOROURACIL. [Suspect]
     Active Substance: FLUOROURACIL
     Dosage: 3582 MG, CYCLIC, EVERY 2 WEEKS
     Route: 042
     Dates: start: 20180716
  15. DAFALGAN FORTE [Concomitant]
     Dosage: UNK
     Route: 065
     Dates: start: 20180703
  16. FLUOROURACIL. [Suspect]
     Active Substance: FLUOROURACIL
     Dosage: 3384 MG, EVERY 2 WEEKS
     Route: 042
     Dates: start: 20180625
  17. MYSOLINE [Concomitant]
     Active Substance: PRIMIDONE
     Dosage: UNK
     Route: 065
     Dates: start: 20180703
  18. BEVACIZUMAB. [Suspect]
     Active Substance: BEVACIZUMAB
     Dosage: 555 MG, EVERY 2 WEEKS
     Route: 042
     Dates: start: 20180716
  19. BEVACIZUMAB. [Suspect]
     Active Substance: BEVACIZUMAB
     Dosage: 623 MG, EVERY 2 WEEKS
     Route: 042
     Dates: start: 20180719, end: 20180805
  20. LEUCOVORIN [FOLINIC ACID] [Suspect]
     Active Substance: LEUCOVORIN
     Dosage: 3582 MG, EVERY 2 WEEKS
     Route: 042
     Dates: start: 20180716
  21. IMODIUM [Concomitant]
     Active Substance: LOPERAMIDE HYDROCHLORIDE
     Indication: DIARRHOEA
     Dosage: UNK
     Route: 065
     Dates: start: 20171127, end: 20180226

REACTIONS (14)
  - Diarrhoea [Recovered/Resolved]
  - Pulmonary embolism [Recovered/Resolved]
  - Dry mouth [Not Recovered/Not Resolved]
  - Anaemia [Recovered/Resolved]
  - Brain injury [Fatal]
  - General physical health deterioration [Not Recovered/Not Resolved]
  - Fall [Unknown]
  - Back pain [Not Recovered/Not Resolved]
  - Decreased appetite [Not Recovered/Not Resolved]
  - Head injury [Recovered/Resolved]
  - Vascular device infection [Recovering/Resolving]
  - Benign prostatic hyperplasia [Not Recovered/Not Resolved]
  - Mucosal inflammation [Not Recovered/Not Resolved]
  - Endocarditis [Fatal]

NARRATIVE: CASE EVENT DATE: 20171122
